FAERS Safety Report 26213026 (Version 1)
Quarter: 2025Q4

REPORT INFORMATION
  Report Type: Spontaneous
  Country: CN (occurrence: CN)
  Receive Date: 20251230
  Receipt Date: 20251230
  Transmission Date: 20260117
  Serious: Yes (Life-Threatening, Other)
  Sender: AMGEN
  Company Number: CN-AMGEN-CHNSP2025255944

PATIENT

DRUGS (1)
  1. BLINATUMOMAB [Suspect]
     Active Substance: BLINATUMOMAB
     Indication: B-cell type acute leukaemia
     Dosage: UNK
     Route: 065

REACTIONS (4)
  - Blood product transfusion dependent [Unknown]
  - Neutrophil count decreased [Unknown]
  - Pneumonia [Unknown]
  - Platelet count decreased [Unknown]
